FAERS Safety Report 5823803-5 (Version None)
Quarter: 2008Q3

REPORT INFORMATION
  Report Type: 
  Country: None (occurrence: None)
  Receive Date: 20080725
  Receipt Date: 20080722
  Transmission Date: 20090109
  Serious: Yes (Hospitalization)
  Sender: FDA-Public Use
  Company Number: DK-GENENTECH-264955

PATIENT
  Sex: Male

DRUGS (2)
  1. RAPTIVA [Suspect]
     Indication: PSORIASIS
     Dosage: 0.7 ML, SINGLE
     Route: 058
     Dates: start: 20080208
  2. RAPTIVA [Suspect]
     Dosage: 1 ML, 1/WEEK
     Route: 058
     Dates: end: 20080310

REACTIONS (4)
  - FATIGUE [None]
  - HEADACHE [None]
  - MYALGIA [None]
  - PHOTOPHOBIA [None]
